FAERS Safety Report 7769006-9 (Version None)
Quarter: 2011Q3

REPORT INFORMATION
  Report Type: 
  Country: None (occurrence: None)
  Receive Date: 20110922
  Receipt Date: 20110307
  Transmission Date: 20111222
  Serious: No
  Sender: FDA-Public Use
  Company Number: US-ASTRAZENECA-2011SE13017

PATIENT
  Age: 70 Year
  Sex: Female

DRUGS (3)
  1. PRISTIQ [Concomitant]
  2. SEROQUEL XR [Suspect]
     Indication: BIPOLAR I DISORDER
     Dosage: 50 MG EARLY EVENING AND 50 MG AT NIGHT
     Route: 048
     Dates: start: 20101201
  3. LAMICTAL [Concomitant]

REACTIONS (3)
  - FALL [None]
  - FRACTURED COCCYX [None]
  - DIZZINESS [None]
